FAERS Safety Report 6155809-3 (Version None)
Quarter: 2009Q2

REPORT INFORMATION
  Report Type: 
  Country: None (occurrence: None)
  Receive Date: 20090415
  Receipt Date: 20090406
  Transmission Date: 20091009
  Serious: Yes (Other)
  Sender: FDA-Public Use
  Company Number: BR-PFIZER INC-2009194567

PATIENT

DRUGS (1)
  1. OXYTETRACYCLINE HCL, POLYMYXIN B SULFATE [Suspect]
     Indication: FACE INJURY
     Dosage: UNK
     Dates: start: 20040101

REACTIONS (2)
  - CARDIAC OPERATION [None]
  - INCORRECT ROUTE OF DRUG ADMINISTRATION [None]
